FAERS Safety Report 7683641-8 (Version None)
Quarter: 2011Q3

REPORT INFORMATION
  Report Type: 
  Country: None (occurrence: None)
  Receive Date: 20110802
  Receipt Date: 20110727
  Transmission Date: 20111222
  Serious: Yes (Other)
  Sender: FDA-Public Use
  Company Number: AEUSA201100207

PATIENT
  Age: 26 Year
  Sex: Female

DRUGS (1)
  1. IGIVNEX [Suspect]
     Indication: IMMUNODEFICIENCY COMMON VARIABLE
     Dosage: IV
     Route: 042

REACTIONS (1)
  - ANAPHYLACTIC REACTION [None]
